FAERS Safety Report 9691505 (Version 2)
Quarter: 2014Q2

REPORT INFORMATION
  Report Type: Spontaneous
  Country: US (occurrence: US)
  Receive Date: 20131115
  Receipt Date: 20140530
  Transmission Date: 20141212
  Serious: No
  Sender: FDA-Public Use
  Company Number: US-009507513-1311USA006572

PATIENT
  Sex: Female
  Weight: 47.17 kg

DRUGS (1)
  1. MIRALAX [Suspect]
     Indication: PRODUCT USED FOR UNKNOWN INDICATION
     Dosage: UNK, QD
     Route: 048
     Dates: start: 2008

REACTIONS (2)
  - Incorrect drug administration duration [Unknown]
  - Product physical issue [Unknown]
